FAERS Safety Report 7444339-4 (Version None)
Quarter: 2011Q2

REPORT INFORMATION
  Report Type: 
  Country: None (occurrence: None)
  Receive Date: 20110419
  Receipt Date: 20110406
  Transmission Date: 20111010
  Serious: Yes (Hospitalization)
  Sender: FDA-Public Use
  Company Number: 027743

PATIENT
  Sex: Male
  Weight: 68 kg

DRUGS (4)
  1. IMURAN [Concomitant]
  2. CORTICOSTEROIDS [Suspect]
  3. FOSAMAX [Concomitant]
  4. CIMZIA [Suspect]
     Indication: CROHN'S DISEASE
     Dosage: (SUBCUTANEOUS)
     Route: 058
     Dates: start: 20090610

REACTIONS (11)
  - CHOLELITHIASIS [None]
  - COUGH [None]
  - SMALL INTESTINAL ULCER HAEMORRHAGE [None]
  - GASTRIC ULCER [None]
  - OSTEOPENIA [None]
  - FLUID RETENTION [None]
  - ABDOMINAL DISTENSION [None]
  - PAIN IN EXTREMITY [None]
  - PROCEDURAL PAIN [None]
  - ABDOMINAL PAIN [None]
  - CATHETER SITE ERYTHEMA [None]
